FAERS Safety Report 13244449 (Version 1)
Quarter: 2017Q1

REPORT INFORMATION
  Report Type: Spontaneous
  Country: US (occurrence: US)
  Receive Date: 20170216
  Receipt Date: 20170216
  Transmission Date: 20170428
  Serious: No
  Sender: FDA-Public Use
  Company Number: US-JAZZ-2017-US-000294

PATIENT
  Sex: Male

DRUGS (19)
  1. LANSOPRAZOLE. [Concomitant]
     Active Substance: LANSOPRAZOLE
  2. PROVIGIL [Concomitant]
     Active Substance: MODAFINIL
  3. VITAMIN C [Concomitant]
     Active Substance: ASCORBIC ACID
  4. VALSARTAN + HIDROCLOROTIAZIDA [Concomitant]
     Active Substance: HYDROCHLOROTHIAZIDE\VALSARTAN
  5. METOPROLOL                         /00376902/ [Concomitant]
     Active Substance: METOPROLOL
  6. SYNTHROID [Concomitant]
     Active Substance: LEVOTHYROXINE SODIUM
  7. XYREM [Suspect]
     Active Substance: SODIUM OXYBATE
     Dosage: DOSE ADJUSTMENT
     Route: 048
     Dates: start: 2014, end: 2014
  8. CARBIDOPA/LEVODOPA [Concomitant]
     Active Substance: CARBIDOPA\LEVODOPA
  9. RAPAFLO [Concomitant]
     Active Substance: SILODOSIN
  10. XYREM [Suspect]
     Active Substance: SODIUM OXYBATE
     Indication: NARCOLEPSY
     Dosage: 2.25G, BID
     Route: 048
     Dates: start: 201407, end: 2014
  11. POTASSIUM CHLORIDE. [Concomitant]
     Active Substance: POTASSIUM CHLORIDE
  12. MELATONIN                          /07129401/ [Concomitant]
  13. GABAPENTIN. [Concomitant]
     Active Substance: GABAPENTIN
  14. XYREM [Suspect]
     Active Substance: SODIUM OXYBATE
     Dosage: 4.5 G, BID
     Route: 048
     Dates: start: 201411
  15. VITAMIN B12 [Concomitant]
     Active Substance: CYANOCOBALAMIN
  16. VITAMIN D3 [Concomitant]
     Active Substance: CHOLECALCIFEROL
  17. PRIMIDONE. [Concomitant]
     Active Substance: PRIMIDONE
  18. CINNAMON                           /01647501/ [Concomitant]
     Active Substance: CINNAMON
  19. CYMBALTA [Concomitant]
     Active Substance: DULOXETINE HYDROCHLORIDE

REACTIONS (1)
  - Lymphoedema [Unknown]

NARRATIVE: CASE EVENT DATE: 201612
